FAERS Safety Report 6050173-2 (Version None)
Quarter: 2009Q1

REPORT INFORMATION
  Report Type: 
  Country: None (occurrence: None)
  Receive Date: 20090122
  Receipt Date: 20090122
  Transmission Date: 20090719
  Serious: No
  Sender: FDA-Public Use
  Company Number: None

PATIENT
  Sex: Female
  Weight: 15 kg

DRUGS (5)
  1. CYTARABINE [Suspect]
     Dosage: 50 MG
  2. DEXAMETHASONE [Suspect]
     Dosage: 112 MG
  3. METHOTREXATE [Suspect]
     Dosage: 20 MG
  4. PEG-L-ASPARAGINASE (K-H) [Suspect]
     Dosage: 1575 IU
  5. VINCRISTINE SULFATE [Suspect]
     Dosage: 3.6 MG

REACTIONS (1)
  - FACIAL PALSY [None]
